FAERS Safety Report 24948295 (Version 2)
Quarter: 2025Q4

REPORT INFORMATION
  Report Type: Spontaneous
  Country: US (occurrence: US)
  Receive Date: 20250210
  Receipt Date: 20251223
  Transmission Date: 20260118
  Serious: Yes (Other)
  Sender: COOPERSURGICAL
  Company Number: US-COOPERSURGICAL, INC.-2025CPS000665

PATIENT
  Age: 33 Year
  Sex: Female
  Weight: 58.957 kg

DRUGS (2)
  1. PARAGARD T 380A [Suspect]
     Active Substance: COPPER
     Indication: Contraception
     Dosage: UNK
     Route: 015
     Dates: start: 20120101
  2. LEVOTHYROXINE [Concomitant]
     Active Substance: LEVOTHYROXINE
     Dosage: UNK
     Dates: start: 200201

REACTIONS (8)
  - Device breakage [Recovered/Resolved]
  - Foreign body in urogenital tract [Recovered/Resolved]
  - Complication of device removal [Recovered/Resolved]
  - Emotional distress [Not Recovered/Not Resolved]
  - Device issue [Recovered/Resolved]
  - Pelvic pain [Recovered/Resolved]
  - Device dislocation [Recovered/Resolved]
  - Dysmenorrhoea [Recovered/Resolved]

NARRATIVE: CASE EVENT DATE: 20210325
